FAERS Safety Report 8559204-9 (Version None)
Quarter: 2012Q3

REPORT INFORMATION
  Report Type: 
  Country: None (occurrence: None)
  Receive Date: 20120720
  Receipt Date: 20120712
  Transmission Date: 20120928
  Serious: Yes (Death)
  Sender: FDA-Public Use
  Company Number: 012424

PATIENT
  Age: 7 Year
  Sex: Female

DRUGS (4)
  1. BUSULFEX [Suspect]
     Dosage: DAILY DOSE, INTRAVENOUS
     Route: 042
  2. METHOTREXATE SODIUM [Concomitant]
  3. CYCLOPHOSPHAMIDE [Concomitant]
  4. CYCLOSPORINE [Concomitant]

REACTIONS (3)
  - ACUTE MYELOID LEUKAEMIA [None]
  - ACUTE GRAFT VERSUS HOST DISEASE [None]
  - RECURRENT CANCER [None]
